FAERS Safety Report 15126319 (Version 2)
Quarter: 2018Q3

REPORT INFORMATION
  Report Type: Spontaneous
  Country: ES (occurrence: ES)
  Receive Date: 20180710
  Receipt Date: 20180810
  Transmission Date: 20181010
  Serious: Yes (Other)
  Sender: FDA-Public Use
  Company Number: ES-BAYER-2018-129576

PATIENT
  Sex: Female

DRUGS (1)
  1. MIRENA [Suspect]
     Active Substance: LEVONORGESTREL
     Indication: GENITAL HAEMORRHAGE
     Dosage: UNK
     Route: 015
     Dates: start: 2015

REACTIONS (8)
  - Haemorrhagic anaemia [Not Recovered/Not Resolved]
  - Pain [Not Recovered/Not Resolved]
  - Device use issue [Recovered/Resolved]
  - Myomectomy [Unknown]
  - Drug ineffective for unapproved indication [Not Recovered/Not Resolved]
  - Uterine polypectomy [Unknown]
  - Genital haemorrhage [Not Recovered/Not Resolved]
  - Off label use of device [Recovered/Resolved]
